FAERS Safety Report 10205028 (Version 2)
Quarter: 2014Q3

REPORT INFORMATION
  Report Type: Spontaneous
  Country: JP (occurrence: JP)
  Receive Date: 20140529
  Receipt Date: 20140729
  Transmission Date: 20150326
  Serious: Yes (Hospitalization)
  Sender: FDA-Public Use
  Company Number: PHJP2014JP000817

PATIENT
  Age: 1 Year
  Sex: Male

DRUGS (2)
  1. TEGRETOL [Suspect]
     Active Substance: CARBAMAZEPINE
     Indication: CONVULSION IN CHILDHOOD
     Dosage: 100 MG, UNK
     Route: 048
     Dates: end: 20140523
  2. TEGRETOL [Suspect]
     Active Substance: CARBAMAZEPINE
     Dosage: 130 MG, UNK
     Route: 048
     Dates: start: 20140524

REACTIONS (6)
  - Shock [Recovered/Resolved]
  - Aphagia [Recovered/Resolved]
  - Lip discolouration [Recovered/Resolved]
  - Cyanosis [Recovered/Resolved]
  - Breath sounds abnormal [Recovered/Resolved]
  - Urticaria [Recovered/Resolved]

NARRATIVE: CASE EVENT DATE: 20140524
